FAERS Safety Report 14528696 (Version 4)
Quarter: 2018Q2

REPORT INFORMATION
  Report Type: Report from Study
  Country: DE (occurrence: DE)
  Receive Date: 20180214
  Receipt Date: 20180413
  Transmission Date: 20180711
  Serious: Yes (Hospitalization)
  Sender: FDA-Public Use
  Company Number: DE-ROCHE-2067878

PATIENT
  Age: 38 Year
  Sex: Female
  Weight: 122 kg

DRUGS (15)
  1. LORATADIN [Concomitant]
     Active Substance: LORATADINE
     Route: 048
     Dates: start: 201703
  2. SEROQUEL [Concomitant]
     Active Substance: QUETIAPINE FUMARATE
     Route: 048
     Dates: start: 201704
  3. ATMADISC FORTE [Concomitant]
     Active Substance: FLUTICASONE FUROATE\SALMETEROL XINAFOATE
     Indication: UPPER RESPIRATORY TRACT INFECTION
     Dosage: 25UG/ 250UG
     Route: 048
     Dates: start: 20170920
  4. FENISTIL (GERMANY) [Concomitant]
     Route: 042
     Dates: start: 20171025, end: 20171025
  5. PERFALGAN [Concomitant]
     Active Substance: ACETAMINOPHEN
     Route: 042
     Dates: start: 20170510, end: 20170510
  6. FENISTIL (GERMANY) [Concomitant]
     Route: 042
     Dates: start: 20180327, end: 20180327
  7. PERFALGAN [Concomitant]
     Active Substance: ACETAMINOPHEN
     Route: 042
     Dates: start: 20171025, end: 20171025
  8. OCRELIZUMAB. [Suspect]
     Active Substance: OCRELIZUMAB
     Indication: RELAPSING-REMITTING MULTIPLE SCLEROSIS
     Dosage: DATE OF MOST RECENT DOSE OF OCRELIZUMAB PRIOR TO THIS EVENT ONSET: 25/OCT/2017?ADMINISTERED AS TWO 3
     Route: 042
     Dates: start: 20170426
  9. METHYLPREDNISOLONE. [Suspect]
     Active Substance: METHYLPREDNISOLONE
     Indication: PREMEDICATION
     Dosage: DATE OF MOST RECENT DOSE OF METHYLPREDNISOLONE PRIOR TO THIS EVENT ONSET: 25/OCT/2017?SUBSEQUENT DOS
     Route: 042
     Dates: start: 20170426
  10. VENLAFAXIN [Concomitant]
     Active Substance: VENLAFAXINE HYDROCHLORIDE
     Route: 048
     Dates: start: 201704
  11. FENISTIL (GERMANY) [Concomitant]
     Route: 042
     Dates: start: 20170426, end: 20170426
  12. NOVALGIN (METAMIZOLE SODIUM) [Concomitant]
     Active Substance: METAMIZOLE SODIUM
     Route: 048
     Dates: start: 2015
  13. FENISTIL (GERMANY) [Concomitant]
     Route: 042
     Dates: start: 20170510, end: 20170510
  14. PERFALGAN [Concomitant]
     Active Substance: ACETAMINOPHEN
     Route: 042
     Dates: start: 20170426, end: 20170426
  15. PERFALGAN [Concomitant]
     Active Substance: ACETAMINOPHEN
     Route: 042
     Dates: start: 20180327, end: 20180327

REACTIONS (1)
  - Benign neoplasm of thymus [Recovered/Resolved]

NARRATIVE: CASE EVENT DATE: 20171108
